FAERS Safety Report 11824455 (Version 5)
Quarter: 2016Q1

REPORT INFORMATION
  Report Type: Spontaneous
  Country: CO (occurrence: CO)
  Receive Date: 20151210
  Receipt Date: 20160118
  Transmission Date: 20160525
  Serious: Yes (Other)
  Sender: FDA-Public Use
  Company Number: PHHY2015CO162267

PATIENT
  Age: 57 Year
  Sex: Male

DRUGS (2)
  1. TEGRETOL [Suspect]
     Active Substance: CARBAMAZEPINE
     Indication: INTELLECTUAL DISABILITY
     Dosage: 400 MG, BID (IN THE MORNING AND AT NIGHT)
     Route: 048
  2. TEGRETOL [Suspect]
     Active Substance: CARBAMAZEPINE
     Indication: MENINGITIS

REACTIONS (5)
  - Seizure [Unknown]
  - Abnormal behaviour [Unknown]
  - Aggression [Recovered/Resolved]
  - Regressive behaviour [Recovered/Resolved]
  - Product use issue [Unknown]
